FAERS Safety Report 11130574 (Version 2)
Quarter: 2015Q2

REPORT INFORMATION
  Report Type: Spontaneous
  Country: US (occurrence: None)
  Receive Date: 20150520
  Receipt Date: 20150601
  Transmission Date: 20150821
  Serious: Yes (Death, Hospitalization)
  Sender: FDA-Public Use
  Company Number: INS201505-000196

PATIENT
  Sex: Female
  Weight: 58.51 kg

DRUGS (20)
  1. DURAGESIC (FENTANYL) [Concomitant]
  2. SUBSYS [Suspect]
     Active Substance: FENTANYL
     Indication: BREAKTHROUGH PAIN
     Dosage: 400 UG, 1 SPRAY
     Dates: start: 20140728, end: 20140806
  3. ALPRAZOLAM. [Concomitant]
     Active Substance: ALPRAZOLAM
  4. ASPIR-81 (ASPIRIN) [Concomitant]
  5. GEMZAR INTRAVENOUS SOLUTION (GEMCITABINE) [Concomitant]
  6. ONDANSETRON [Concomitant]
     Active Substance: ONDANSETRON
  7. PROMETHAZINE [Concomitant]
     Active Substance: PROMETHAZINE\PROMETHAZINE HYDROCHLORIDE
  8. PROTONIX [Concomitant]
     Active Substance: PANTOPRAZOLE SODIUM
  9. VALSARTAN. [Concomitant]
     Active Substance: VALSARTAN
  10. ALIMTA INTRAVENOUS SOLUTION (PEMETREXED) [Concomitant]
  11. AVASTIN INTRAVENOUS SOLUTION (BEVACIZUMAB) [Concomitant]
  12. MAGNESIUM [Concomitant]
     Active Substance: MAGNESIUM
  13. MEGESTROL [Concomitant]
     Active Substance: MEGESTROL
  14. VITAMIN D3 (CHOLECALCIFEROL) [Concomitant]
  15. LOMOTIL (DIPHENOXYLATE, ATROPINE) [Concomitant]
  16. CARBOPLATIN. [Concomitant]
     Active Substance: CARBOPLATIN
  17. LEVOTHYROXINE [Concomitant]
     Active Substance: LEVOTHYROXINE
  18. CELEXA (CITALOPRAM) [Concomitant]
  19. TRAMADOL [Concomitant]
     Active Substance: TRAMADOL
  20. DEXAMETHASONE. [Concomitant]
     Active Substance: DEXAMETHASONE

REACTIONS (1)
  - Death [None]
